FAERS Safety Report 8474822 (Version 2)
Quarter: 2012Q4

REPORT INFORMATION
  Report Type: 
  Country: FR (occurrence: FR)
  Receive Date: 20120323
  Receipt Date: 20121213
  Transmission Date: 20130627
  Serious: Yes (Hospitalization)
  Sender: FDA-Public Use
  Company Number: FR-ELI_LILLY_AND_COMPANY-FR201203002988

PATIENT
  Age: 51 Year
  Sex: Male
  Weight: 85 kg

DRUGS (4)
  1. GEMZAR [Suspect]
     Indication: LUNG ADENOCARCINOMA
     Dosage: 1000 mg/m2, weekly (1/W)
     Route: 042
     Dates: start: 20110906, end: 20120110
  2. INNOHEP [Concomitant]
  3. INEXIUM [Concomitant]
  4. ELISOR [Concomitant]

REACTIONS (2)
  - Mixed liver injury [Recovering/Resolving]
  - Jaundice cholestatic [Recovered/Resolved]
